FAERS Safety Report 5604323-X (Version None)
Quarter: 2008Q1

REPORT INFORMATION
  Report Type: 
  Country: None (occurrence: None)
  Receive Date: 20080128
  Receipt Date: 20080123
  Transmission Date: 20080703
  Serious: Yes (Hospitalization)
  Sender: FDA-Public Use
  Company Number: B0491152A

PATIENT
  Age: 76 Year
  Sex: Female

DRUGS (4)
  1. VALTREX [Suspect]
     Indication: HERPES ZOSTER
     Dosage: 500MG THREE TIMES PER DAY
     Route: 048
     Dates: start: 20070925, end: 20070929
  2. NORVASC [Concomitant]
     Route: 048
  3. UNKNOWN DRUG [Concomitant]
     Route: 065
  4. UNKNOWN DRUG [Concomitant]
     Route: 065

REACTIONS (4)
  - BLOOD CREATINE INCREASED [None]
  - BLOOD UREA INCREASED [None]
  - DIZZINESS [None]
  - RENAL FAILURE ACUTE [None]
